FAERS Safety Report 8186433-9 (Version None)
Quarter: 2012Q1

REPORT INFORMATION
  Report Type: 
  Country: None (occurrence: None)
  Receive Date: 20120305
  Receipt Date: 20120305
  Transmission Date: 20120608
  Serious: Yes (Hospitalization)
  Sender: FDA-Public Use
  Company Number: None

PATIENT
  Sex: Female
  Weight: 53 kg

DRUGS (2)
  1. CARBOPLATIN [Suspect]
     Indication: BREAST CANCER
     Dosage: 670 MG Q3W IV
     Route: 042
     Dates: start: 20111017, end: 20120130
  2. ABRAXANE [Suspect]
     Indication: BREAST CANCER
     Dosage: 143MG QW IV
     Route: 042
     Dates: end: 20120213

REACTIONS (3)
  - JUGULAR VEIN THROMBOSIS [None]
  - DEVICE OCCLUSION [None]
  - DEVICE DISLOCATION [None]
